FAERS Safety Report 23733533 (Version 1)
Quarter: 2024Q2

REPORT INFORMATION
  Report Type: Spontaneous
  Country: US (occurrence: US)
  Receive Date: 20240411
  Receipt Date: 20240411
  Transmission Date: 20240716
  Serious: Yes (Hospitalization)
  Sender: FDA-Public Use
  Company Number: US-FMCRTG-FMC-2403-000275

PATIENT
  Age: 48 Year
  Sex: Female
  Weight: 113 kg

DRUGS (1)
  1. DELFLEX [Suspect]
     Active Substance: CALCIUM CHLORIDE\DEXTROSE\MAGNESIUM CHLORIDE\SODIUM CHLORIDE\SODIUM LACTATE
     Indication: End stage renal disease
     Dosage: 6 EXCHANGES OF 2200ML, DWELL 1HR 15MINS
     Route: 033

REACTIONS (2)
  - Hyperkalaemia [Unknown]
  - Ultrafiltration failure [Unknown]

NARRATIVE: CASE EVENT DATE: 20240221
